FAERS Safety Report 18573953 (Version 1)
Quarter: 2020Q4

REPORT INFORMATION
  Report Type: Spontaneous
  Country: US (occurrence: US)
  Receive Date: 20201201
  Receipt Date: 20201201
  Transmission Date: 20210114
  Serious: Yes (Hospitalization)
  Sender: FDA-Public Use
  Company Number: None

PATIENT
  Age: 77 Year
  Sex: Female
  Weight: 52.2 kg

DRUGS (6)
  1. CYCLOPHOSPHAMIDE. [Suspect]
     Active Substance: CYCLOPHOSPHAMIDE
     Dates: end: 20201013
  2. RITUXIMAB (MOAB C2B8 ANTI CD20, CHIMERIC) [Suspect]
     Active Substance: RITUXIMAB
     Dates: end: 20201008
  3. DOXORUBICIN HYDROCHLORIDE. [Suspect]
     Active Substance: DOXORUBICIN HYDROCHLORIDE
     Dates: end: 20201013
  4. PREDNISONE. [Suspect]
     Active Substance: PREDNISONE
     Dates: end: 20201013
  5. VINCRISTINE SULFATE. [Suspect]
     Active Substance: VINCRISTINE SULFATE
     Dates: end: 20201013
  6. ETOSPOSIDE (VP-16) [Suspect]
     Active Substance: ETOPOSIDE
     Dates: end: 20201013

REACTIONS (18)
  - Dysphagia [None]
  - Pyrexia [None]
  - Blood magnesium decreased [None]
  - White blood cell count decreased [None]
  - Haemoglobin decreased [None]
  - Fatigue [None]
  - Rhinorrhoea [None]
  - Oesophageal candidiasis [None]
  - Blood magnesium [None]
  - Blood potassium decreased [None]
  - Chills [None]
  - Oral candidiasis [None]
  - Urinary tract infection [None]
  - Asthenia [None]
  - Febrile neutropenia [None]
  - Blood urine present [None]
  - Decubitus ulcer [None]
  - Oropharyngeal pain [None]

NARRATIVE: CASE EVENT DATE: 20201020
